FAERS Safety Report 7831385-1 (Version None)
Quarter: 2011Q4

REPORT INFORMATION
  Report Type: 
  Country: None (occurrence: None)
  Receive Date: 20111021
  Receipt Date: 20111014
  Transmission Date: 20120403
  Serious: Yes (Other)
  Sender: FDA-Public Use
  Company Number: US-CELGENEUS-163-21880-11101787

PATIENT
  Sex: Female

DRUGS (7)
  1. LEVOTHYROXINE SODIUM [Concomitant]
     Route: 065
  2. REVLIMID [Suspect]
     Dosage: 25 MILLIGRAM
     Route: 048
     Dates: start: 20110411
  3. FENTANYL [Concomitant]
     Route: 065
  4. ALLOPURINOL [Concomitant]
     Route: 065
  5. GABAPENTIN [Concomitant]
     Route: 065
  6. WARFARIN SODIUM [Concomitant]
     Route: 065
  7. LORATADINE [Concomitant]
     Route: 065

REACTIONS (1)
  - HAEMORRHAGE [None]
